FAERS Safety Report 13299441 (Version 1)
Quarter: 2017Q1

REPORT INFORMATION
  Report Type: Spontaneous
  Country: PE (occurrence: PE)
  Receive Date: 20170306
  Receipt Date: 20170306
  Transmission Date: 20170428
  Serious: Yes (Other)
  Sender: FDA-Public Use
  Company Number: PE-PFIZER INC-2016595827

PATIENT
  Age: 74 Year
  Sex: Female

DRUGS (2)
  1. XALACOM [Suspect]
     Active Substance: LATANOPROST\TIMOLOL MALEATE
     Dosage: 1 GTT, DAILY
  2. XALATAN [Suspect]
     Active Substance: LATANOPROST

REACTIONS (7)
  - Blood cholesterol abnormal [Unknown]
  - Dry eye [Unknown]
  - Blood cholesterol increased [Not Recovered/Not Resolved]
  - Cataract [Unknown]
  - Colon cancer [Unknown]
  - Retinal disorder [Unknown]
  - Abdominal discomfort [Unknown]

NARRATIVE: CASE EVENT DATE: 20071220
